FAERS Safety Report 9916742 (Version 2)
Quarter: 2014Q1

REPORT INFORMATION
  Report Type: Spontaneous
  Country: US (occurrence: US)
  Receive Date: 20140221
  Receipt Date: 20140318
  Transmission Date: 20141002
  Serious: Yes (Hospitalization, Other)
  Sender: FDA-Public Use
  Company Number: US-B.I. PHARMACEUTICALS,INC./RIDGEFIELD-2014-BI-07361BP

PATIENT
  Age: 60 Year
  Sex: Male
  Weight: 32 kg

DRUGS (11)
  1. TRADJENTA [Suspect]
     Indication: DIABETES MELLITUS
     Dosage: 5 MG
     Route: 048
     Dates: start: 201302
  2. MOBIC [Concomitant]
     Indication: BACK PAIN
     Route: 065
  3. GLIPIZIDE [Concomitant]
     Indication: DIABETES MELLITUS
     Route: 065
  4. METFORMIN [Concomitant]
     Indication: DIABETES MELLITUS
     Route: 065
  5. METOPROLOL [Concomitant]
     Indication: HYPERTENSION
     Route: 065
  6. PLAVIX [Concomitant]
     Route: 065
  7. POTASSIUM [Concomitant]
     Indication: MINERAL SUPPLEMENTATION
     Route: 065
  8. OXYCODONE [Concomitant]
     Indication: BACK PAIN
     Route: 065
  9. GABAPENTIN [Concomitant]
     Route: 065
  10. LASIX [Concomitant]
     Indication: FLUID RETENTION
     Route: 065
  11. PRAVACHOL [Concomitant]
     Indication: BLOOD CHOLESTEROL INCREASED
     Route: 065

REACTIONS (4)
  - Myocardial infarction [Recovered/Resolved]
  - Myocardial infarction [Unknown]
  - Vascular graft [Recovered/Resolved]
  - Malaise [Not Recovered/Not Resolved]
